FAERS Safety Report 13010120 (Version 1)
Quarter: 2016Q4

REPORT INFORMATION
  Report Type: Spontaneous
  Country: US (occurrence: US)
  Receive Date: 20161207
  Receipt Date: 20161207
  Transmission Date: 20170207
  Serious: Yes (Death, Hospitalization)
  Sender: FDA-Public Use
  Company Number: None

PATIENT
  Age: 13 Year
  Sex: Male
  Weight: 60.7 kg

DRUGS (6)
  1. METHOTREXATE. [Suspect]
     Active Substance: METHOTREXATE
     Dates: end: 20161117
  2. VINCRISTINE SULFATE. [Suspect]
     Active Substance: VINCRISTINE SULFATE
     Dates: end: 20161117
  3. CYTARABINE. [Suspect]
     Active Substance: CYTARABINE
     Dates: end: 20161113
  4. ONCASPAR [Suspect]
     Active Substance: PEGASPARGASE
     Dates: end: 20161117
  5. CYCLOPHOSPHAMIDE. [Suspect]
     Active Substance: CYCLOPHOSPHAMIDE
     Dates: end: 20161104
  6. MERCAPTOPURINE. [Suspect]
     Active Substance: MERCAPTOPURINE
     Dates: end: 20161113

REACTIONS (6)
  - Neutropenia [None]
  - Haemorrhagic stroke [None]
  - Klebsiella infection [None]
  - Systemic candida [None]
  - Mental status changes [None]
  - Haemorrhagic infarction [None]

NARRATIVE: CASE EVENT DATE: 20161119
